FAERS Safety Report 7830851-2 (Version None)
Quarter: 2011Q4

REPORT INFORMATION
  Report Type: 
  Country: None (occurrence: None)
  Receive Date: 20111021
  Receipt Date: 20111020
  Transmission Date: 20120403
  Serious: Yes (Other)
  Sender: FDA-Public Use
  Company Number: US-PFIZER INC-2011254014

PATIENT
  Sex: Male
  Weight: 68.481 kg

DRUGS (2)
  1. DILANTIN [Suspect]
     Indication: PETIT MAL EPILEPSY
     Dosage: 300 MG IN A DAY
     Dates: start: 20111001
  2. DILANTIN [Suspect]
     Indication: GRAND MAL CONVULSION
     Dosage: EIGHT TABLETS OF 50 MG (400 MG) IN A DAY
     Dates: start: 20110701, end: 20111001

REACTIONS (3)
  - ANTICONVULSANT DRUG LEVEL INCREASED [None]
  - URINARY TRACT INFECTION [None]
  - PAIN [None]
